FAERS Safety Report 6567844-1 (Version None)
Quarter: 2010Q1

REPORT INFORMATION
  Report Type: 
  Country: None (occurrence: None)
  Receive Date: 20100203
  Receipt Date: 20100128
  Transmission Date: 20100710
  Serious: Yes (Hospitalization, Other)
  Sender: FDA-Public Use
  Company Number: US-JNJFOC-20091201206

PATIENT
  Age: 35 Year
  Sex: Male

DRUGS (4)
  1. LEVAQUIN [Suspect]
     Indication: VASECTOMY
     Route: 042
     Dates: start: 20080301, end: 20080301
  2. LEVAQUIN [Suspect]
     Indication: INFECTION
     Route: 048
  3. LYRICA [Concomitant]
     Route: 065
  4. UNKNOWN MEDICATION [Concomitant]
     Route: 065

REACTIONS (13)
  - ARTHRALGIA [None]
  - ARTHROPATHY [None]
  - BACK PAIN [None]
  - EYE PAIN [None]
  - FATIGUE [None]
  - FIBROMYALGIA [None]
  - INSOMNIA [None]
  - MUSCLE DISORDER [None]
  - NERVOUS SYSTEM DISORDER [None]
  - NEURITIS [None]
  - NEUROPATHY PERIPHERAL [None]
  - TENDONITIS [None]
  - TINNITUS [None]
